FAERS Safety Report 4719525-4 (Version None)
Quarter: 2005Q3

REPORT INFORMATION
  Report Type: 
  Country: None (occurrence: None)
  Receive Date: 20050719
  Receipt Date: 20050719
  Transmission Date: 20060218
  Serious: Yes (Hospitalization)
  Sender: FDA-Public Use
  Company Number: None

PATIENT
  Sex: Male

DRUGS (14)
  1. PROPOXYPHENE N/APAP  100 MG/650 MG [Suspect]
     Indication: BACK PAIN
     Dosage: 1 TABLET  Q 8 HR PM  ORAL
     Route: 048
  2. TRAMADOL  50 MG [Suspect]
     Dosage: 50 MG TID PRN ORAL
     Route: 048
  3. CYCLOBENZAPRINE HCL [Concomitant]
  4. ATENOLOL [Concomitant]
  5. CYANOCOBALAMIN [Concomitant]
  6. DILTIAZEM [Concomitant]
  7. FLURBIPROFEN OPHTHALMIC [Concomitant]
  8. HYDROCHLOROTHIAZIDE [Concomitant]
  9. INSULIN [Concomitant]
  10. LEVOTHYROXINE SODIUM [Concomitant]
  11. LISINOPRIL [Concomitant]
  12. OMEPRAZOLE [Concomitant]
  13. PREDNISOLONE ACETATE OPHTHALMIC [Concomitant]
  14. SIMVASTATIN [Concomitant]

REACTIONS (2)
  - AGITATION [None]
  - HALLUCINATION [None]
